FAERS Safety Report 9015895 (Version 2)
Quarter: 2013Q1

REPORT INFORMATION
  Report Type: Spontaneous
  Country: US (occurrence: US)
  Receive Date: 20130116
  Receipt Date: 20130124
  Transmission Date: 20140127
  Serious: No
  Sender: FDA-Public Use
  Company Number: US-PFIZER INC-2013018095

PATIENT
  Age: 77 Year
  Sex: Female
  Weight: 86.17 kg

DRUGS (2)
  1. CADUET [Suspect]
     Indication: CARDIAC DISORDER
     Dosage: UNK, DAILY
  2. CADUET [Suspect]
     Indication: HYPERTENSION

REACTIONS (5)
  - Influenza [Unknown]
  - Dyspnoea [Not Recovered/Not Resolved]
  - Nasopharyngitis [Not Recovered/Not Resolved]
  - Malaise [Not Recovered/Not Resolved]
  - Upper respiratory tract congestion [Not Recovered/Not Resolved]
